FAERS Safety Report 8947935 (Version 1)
Quarter: 2012Q4

REPORT INFORMATION
  Report Type: Spontaneous
  Country: US (occurrence: None)
  Receive Date: 20121127
  Receipt Date: 20121127
  Transmission Date: 20130627
  Serious: Yes (Other)
  Sender: FDA-Public Use
  Company Number: AUR-APL-2012-05018

PATIENT
  Age: 46 Year
  Sex: Male

DRUGS (1)
  1. TRIMETHOPRIM AND SULFAMETHOXAZOLE [Suspect]
     Indication: CELLULITIS
     Dosage: 4 Dosage forms (2 Dosage forms, 2 in 1 D), Oral
     Route: 048

REACTIONS (12)
  - Pyrexia [None]
  - Chills [None]
  - Pancytopenia [None]
  - Petechiae [None]
  - Blood sodium decreased [None]
  - Increased tendency to bruise [None]
  - Aspartate aminotransferase increased [None]
  - Alanine aminotransferase increased [None]
  - Toxicity to various agents [None]
  - Fibrin D dimer increased [None]
  - Blood fibrinogen increased [None]
  - Prothrombin time prolonged [None]
